FAERS Safety Report 5287084-6 (Version None)
Quarter: 2007Q2

REPORT INFORMATION
  Report Type: 
  Country: None (occurrence: None)
  Receive Date: 20070404
  Receipt Date: 20070323
  Transmission Date: 20071010
  Serious: Yes (Hospitalization)
  Sender: FDA-Public Use
  Company Number: JP-PFIZER INC-2006153568

PATIENT
  Sex: Female

DRUGS (4)
  1. LIPITOR [Suspect]
     Indication: HYPERLIPIDAEMIA
     Dosage: DAILY DOSE:10MG
     Route: 048
     Dates: start: 20060906, end: 20061204
  2. BLOPRESS [Suspect]
     Indication: HYPERTENSION
     Dosage: DAILY DOSE:8MG
     Route: 048
  3. NIFLAN [Suspect]
     Indication: UPPER RESPIRATORY TRACT INFECTION
     Dosage: DAILY DOSE:225MG
     Route: 048
     Dates: start: 20061020, end: 20061204
  4. FAROM [Suspect]
     Indication: UPPER RESPIRATORY TRACT INFECTION
     Dosage: DAILY DOSE:600MG
     Route: 048
     Dates: start: 20061118, end: 20061124

REACTIONS (2)
  - LIVER DISORDER [None]
  - RASH [None]
